FAERS Safety Report 18459449 (Version 1)
Quarter: 2020Q4

REPORT INFORMATION
  Report Type: Spontaneous
  Country: US (occurrence: US)
  Receive Date: 20201103
  Receipt Date: 20201103
  Transmission Date: 20210114
  Serious: No
  Sender: FDA-Public Use
  Company Number: US-PFIZER INC-2016480669

PATIENT
  Age: 84 Year
  Sex: Female

DRUGS (2)
  1. DETROL LA [Suspect]
     Active Substance: TOLTERODINE TARTRATE
  2. LYRICA [Suspect]
     Active Substance: PREGABALIN

REACTIONS (2)
  - Hypoacusis [Unknown]
  - Dyspnoea [Unknown]
